FAERS Safety Report 7779003-5 (Version None)
Quarter: 2011Q3

REPORT INFORMATION
  Report Type: 
  Country: None (occurrence: None)
  Receive Date: 20110926
  Receipt Date: 20110922
  Transmission Date: 20111222
  Serious: Yes (Hospitalization)
  Sender: FDA-Public Use
  Company Number: US-JNJFOC-20110902608

PATIENT
  Sex: Male
  Weight: 99.79 kg

DRUGS (15)
  1. STELARA [Suspect]
     Route: 058
     Dates: start: 20101207
  2. CAPTOPRIL [Concomitant]
  3. STELARA [Suspect]
     Indication: PSORIASIS
     Route: 058
     Dates: start: 20100701
  4. PRILOSEC [Concomitant]
  5. ZANAFLEX [Concomitant]
     Dosage: 1-2 EVERY NIGHT
  6. ZOLOFT [Concomitant]
     Indication: DEPRESSION
  7. TRIPLE FLEX [Concomitant]
  8. NAPROXEN (ALEVE) [Concomitant]
     Dosage: AS NEEDED
  9. STELARA [Suspect]
     Route: 058
     Dates: start: 20100504
  10. TWYNSTA [Concomitant]
     Indication: HYPERTENSION
  11. NORVASC [Concomitant]
  12. SOMA [Concomitant]
  13. STELARA [Suspect]
     Route: 058
     Dates: start: 20100831
  14. MULTI-VITAMINS [Concomitant]
     Dosage: AS DIRECTED
  15. IBUPROFEN [Concomitant]
     Dosage: AS NEEDED

REACTIONS (1)
  - CONVULSION [None]
